FAERS Safety Report 7637606-2 (Version None)
Quarter: 2011Q3

REPORT INFORMATION
  Report Type: 
  Country: None (occurrence: None)
  Receive Date: 20110726
  Receipt Date: 20110718
  Transmission Date: 20111222
  Serious: Yes (Other)
  Sender: FDA-Public Use
  Company Number: PHHY2011US65059

PATIENT
  Age: 65 Year
  Sex: Female

DRUGS (1)
  1. VALPROIC ACID [Suspect]
     Indication: EPILEPSY
     Dosage: 1 G  DAILY

REACTIONS (13)
  - DEMENTIA [None]
  - EXECUTIVE DYSFUNCTION [None]
  - ATROPHY [None]
  - COGNITIVE DISORDER [None]
  - AMNESIA [None]
  - URINARY INCONTINENCE [None]
  - MENTAL IMPAIRMENT [None]
  - VISUAL IMPAIRMENT [None]
  - HEADACHE [None]
  - METABOLIC DISORDER [None]
  - NORMAL PRESSURE HYDROCEPHALUS [None]
  - HYPOMETABOLISM [None]
  - GAIT DISTURBANCE [None]
